FAERS Safety Report 8312782-7 (Version None)
Quarter: 2012Q2

REPORT INFORMATION
  Report Type: 
  Country: None (occurrence: None)
  Receive Date: 20120426
  Receipt Date: 20120421
  Transmission Date: 20120825
  Serious: No
  Sender: FDA-Public Use
  Company Number: US-PFIZER INC-2012098715

PATIENT
  Sex: Male

DRUGS (3)
  1. GABAPENTIN [Suspect]
     Indication: NEUROPATHY PERIPHERAL
     Dosage: UNKNOWN DOSE TWO TABLETS THREE TIMES A DAY
     Route: 048
  2. METFORMIN [Concomitant]
     Indication: DIABETES MELLITUS
     Dosage: 2000 MG,DAILY
  3. MIRALAX [Suspect]
     Indication: CONSTIPATION
     Dosage: UNK
     Dates: start: 20120401

REACTIONS (2)
  - DRUG INEFFECTIVE [None]
  - CONSTIPATION [None]
